FAERS Safety Report 13343124 (Version 2)
Quarter: 2017Q1

REPORT INFORMATION
  Report Type: Spontaneous
  Country: IT (occurrence: IT)
  Receive Date: 20170316
  Receipt Date: 20170328
  Transmission Date: 20170428
  Serious: Yes (Other)
  Sender: FDA-Public Use
  Company Number: IT-PFIZER INC-2017115260

PATIENT
  Age: 69 Year
  Sex: Female
  Weight: 95 kg

DRUGS (12)
  1. AVASTIN [Concomitant]
     Active Substance: BEVACIZUMAB
     Dosage: 360 MG, UNK
     Dates: start: 20161121, end: 20170123
  2. DELTACORTENE [Concomitant]
     Active Substance: PREDNISONE
     Dosage: UNK
  3. CARDIRENE [Concomitant]
     Active Substance: ASPIRIN DL-LYSINE
     Dosage: UNK
  4. FLUOROURACIL. [Concomitant]
     Active Substance: FLUOROURACIL
     Dosage: 600 MG, UNK
     Route: 040
     Dates: start: 20161121, end: 20170123
  5. FLUOROURACIL. [Concomitant]
     Active Substance: FLUOROURACIL
     Dosage: 3630 MG, UNK
     Route: 042
     Dates: start: 20161121, end: 20170123
  6. OMEPRAZOLE. [Concomitant]
     Active Substance: OMEPRAZOLE
     Dosage: UNK
  7. VALSARTAN/HYDROCHLOROTHIAZIDE [Concomitant]
     Active Substance: HYDROCHLOROTHIAZIDE\VALSARTAN
     Dosage: UNK
  8. TARGIN [Concomitant]
     Active Substance: NALOXONE HYDROCHLORIDE\OXYCODONE HYDROCHLORIDE
     Dosage: UNK
  9. LOBIVON [Concomitant]
     Active Substance: NEBIVOLOL HYDROCHLORIDE
     Dosage: UNK
  10. LEVOFOLINIC ACID [Concomitant]
     Active Substance: LEVOLEUCOVORIN
     Dosage: 330 MG, UNK
     Route: 042
     Dates: start: 20161121, end: 20170123
  11. IRINOTECAN HCL [Suspect]
     Active Substance: IRINOTECAN HYDROCHLORIDE
     Indication: COLORECTAL ADENOCARCINOMA
     Dosage: 270 MG, CYCLIC
     Route: 042
     Dates: start: 20161121, end: 20170123
  12. DORZOLAMIDE [Concomitant]
     Active Substance: DORZOLAMIDE
     Dosage: UNK

REACTIONS (1)
  - Infusion related reaction [Recovering/Resolving]

NARRATIVE: CASE EVENT DATE: 20161205
